FAERS Safety Report 23717394 (Version 1)
Quarter: 2024Q2

REPORT INFORMATION
  Report Type: Spontaneous
  Country: CO (occurrence: CO)
  Receive Date: 20240408
  Receipt Date: 20240408
  Transmission Date: 20240716
  Serious: Yes (Other)
  Sender: FDA-Public Use
  Company Number: CO-SA-SAC20240405000446

PATIENT
  Age: 66 Year
  Sex: Female
  Weight: 58 kg

DRUGS (1)
  1. DUPILUMAB [Suspect]
     Active Substance: DUPILUMAB
     Indication: Nasal polyps
     Dosage: 300 MG, Q15D
     Route: 058

REACTIONS (6)
  - Choking [Unknown]
  - Anxiety [Unknown]
  - Feeling cold [Unknown]
  - Crying [Unknown]
  - Gait disturbance [Unknown]
  - Vision blurred [Unknown]
